FAERS Safety Report 23336453 (Version 1)
Quarter: 2023Q4

REPORT INFORMATION
  Report Type: Report from Study
  Country: DE (occurrence: DE)
  Receive Date: 20231225
  Receipt Date: 20231225
  Transmission Date: 20240109
  Serious: Yes (Hospitalization, Other)
  Sender: FDA-Public Use
  Company Number: DE-ABBVIE-5516287

PATIENT
  Sex: Female

DRUGS (2)
  1. CARBIDOPA\LEVODOPA [Suspect]
     Active Substance: CARBIDOPA\LEVODOPA
     Indication: Parkinson^s disease
     Dosage: MORNING DOSE: 7.0ML; CONTINUOUS RATE DAY: 4.1ML/H; EXTRA DOSAGE: 0.0ML,?LAST ADMIN DATE 2023.
     Route: 050
     Dates: start: 20231107
  2. CARBIDOPA\LEVODOPA [Suspect]
     Active Substance: CARBIDOPA\LEVODOPA
     Dosage: MORNING DOSE: 5.0ML; CONTINUOUS RATE DAY : 3.9 ML/H; EXTRA DOSAGE: UNKNOWN?FIRST ADMIN DATE 2023
     Route: 050

REACTIONS (6)
  - Wrist fracture [Recovered/Resolved]
  - Movement disorder [Recovered/Resolved]
  - Vomiting [Recovered/Resolved]
  - Nausea [Recovered/Resolved]
  - Dyskinesia [Recovered/Resolved]
  - Fall [Recovered/Resolved]

NARRATIVE: CASE EVENT DATE: 20230101
